FAERS Safety Report 5152149-6 (Version None)
Quarter: 2006Q4

REPORT INFORMATION
  Report Type: 
  Country: None (occurrence: None)
  Receive Date: 20061116
  Receipt Date: 20061017
  Transmission Date: 20070319
  Serious: Yes (Hospitalization)
  Sender: FDA-Public Use
  Company Number: US-BRISTOL-MYERS SQUIBB COMPANY-13544473

PATIENT
  Age: 55 Year
  Sex: Male
  Weight: 65 kg

DRUGS (11)
  1. CISPLATIN [Suspect]
     Indication: NEOPLASM MALIGNANT
     Route: 042
     Dates: start: 20061010, end: 20061010
  2. DOCETAXEL [Suspect]
     Indication: NEOPLASM MALIGNANT
     Route: 042
     Dates: start: 20061010, end: 20061010
  3. DUONEB [Concomitant]
     Indication: WHEEZING
     Route: 055
  4. FENTANYL TRANSDERMAL SYSTEM [Concomitant]
     Indication: PAIN
  5. DILAUDID [Concomitant]
     Indication: PAIN
     Route: 048
  6. MULTI-VITAMIN [Concomitant]
     Route: 048
  7. PROTONIX [Concomitant]
     Route: 048
  8. K-DUR 10 [Concomitant]
     Route: 048
  9. SEROQUEL [Concomitant]
     Route: 048
  10. CETUXIMAB [Concomitant]
     Route: 042
     Dates: start: 20061107, end: 20061107
  11. RADIATION THERAPY [Concomitant]

REACTIONS (8)
  - ARTHRALGIA [None]
  - ATRIAL FIBRILLATION [None]
  - BACK PAIN [None]
  - CLOSTRIDIUM DIFFICILE COLITIS [None]
  - HYPOALBUMINAEMIA [None]
  - HYPOTENSION [None]
  - MYALGIA [None]
  - PLEURAL EFFUSION [None]
